FAERS Safety Report 13743228 (Version 2)
Quarter: 2017Q3

REPORT INFORMATION
  Report Type: Spontaneous
  Country: US (occurrence: US)
  Receive Date: 20170711
  Receipt Date: 20170901
  Transmission Date: 20171127
  Serious: No
  Sender: FDA-Public Use
  Company Number: US-ASTRAZENECA-2017SE71524

PATIENT
  Age: 25158 Day
  Sex: Female
  Weight: 64.4 kg

DRUGS (15)
  1. CALCIUM [Concomitant]
     Active Substance: CALCIUM
     Indication: PRODUCT USED FOR UNKNOWN INDICATION
  2. UBIDECARENONE [Concomitant]
     Active Substance: UBIDECARENONE
     Indication: PRODUCT USED FOR UNKNOWN INDICATION
  3. RHINOCORT ALLERGY [Suspect]
     Active Substance: BUDESONIDE
     Indication: MULTIPLE ALLERGIES
     Route: 055
  4. RHINOCORT ALLERGY [Suspect]
     Active Substance: BUDESONIDE
     Indication: SINUS DISORDER
     Dosage: ONE SPRAY IN EACH NOSTRIL, DAILY, TOTAL OF 60 SPRAYS
     Route: 045
     Dates: start: 20170602, end: 20170611
  5. RHINOCORT ALLERGY [Suspect]
     Active Substance: BUDESONIDE
     Indication: SINUS DISORDER
     Route: 055
  6. CLONAZEPAM. [Concomitant]
     Active Substance: CLONAZEPAM
     Indication: ANXIETY
     Dosage: 0.5 PER DAY
  7. CLONAZEPAM. [Concomitant]
     Active Substance: CLONAZEPAM
     Indication: SLEEP DISORDER THERAPY
     Dosage: 0.5 PER DAY
  8. VITAMIN B12 [Concomitant]
     Active Substance: CYANOCOBALAMIN
     Indication: PRODUCT USED FOR UNKNOWN INDICATION
  9. ASPIRIN. [Concomitant]
     Active Substance: ASPIRIN
     Indication: PRODUCT USED FOR UNKNOWN INDICATION
  10. RISEDRONATE [Concomitant]
     Active Substance: RISEDRONATE SODIUM
     Indication: NUTRITIONAL SUPPLEMENTATION
  11. NEXIUM [Concomitant]
     Active Substance: ESOMEPRAZOLE MAGNESIUM
     Indication: GASTROOESOPHAGEAL REFLUX DISEASE
     Dosage: DAILY FOR YEARS
  12. CRESTOR [Concomitant]
     Active Substance: ROSUVASTATIN CALCIUM
  13. VITAMINS NOS [Concomitant]
     Active Substance: VITAMINS
     Indication: PRODUCT USED FOR UNKNOWN INDICATION
  14. TOPROL XL [Concomitant]
     Active Substance: METOPROLOL SUCCINATE
     Indication: HYPERTENSION
  15. RHINOCORT ALLERGY [Suspect]
     Active Substance: BUDESONIDE
     Indication: MULTIPLE ALLERGIES
     Dosage: ONE SPRAY IN EACH NOSTRIL, DAILY, TOTAL OF 60 SPRAYS
     Route: 045
     Dates: start: 20170602, end: 20170611

REACTIONS (12)
  - Nasal congestion [Recovered/Resolved]
  - Product use in unapproved indication [Recovering/Resolving]
  - Incorrect dose administered [Recovering/Resolving]
  - Ear discomfort [Recovering/Resolving]
  - Panic disorder [Recovering/Resolving]
  - Dizziness [Recovered/Resolved]
  - Anxiety [Recovered/Resolved]
  - Palpitations [Recovering/Resolving]
  - Ear pain [Recovering/Resolving]
  - Off label use [Recovering/Resolving]
  - Sinus congestion [Recovered/Resolved]
  - Ear congestion [Recovering/Resolving]

NARRATIVE: CASE EVENT DATE: 20170602
